FAERS Safety Report 11051354 (Version 1)
Quarter: 2015Q2

REPORT INFORMATION
  Report Type: Spontaneous
  Country: US (occurrence: None)
  Receive Date: 20150420
  Receipt Date: 20150420
  Transmission Date: 20150821
  Serious: No
  Sender: FDA-Public Use
  Company Number: None

PATIENT
  Weight: 85.4 kg

DRUGS (1)
  1. AZITHROMYCIN [Suspect]
     Active Substance: AZITHROMYCIN ANHYDROUS
     Indication: INFECTION
     Route: 048
     Dates: start: 20140211, end: 20141212

REACTIONS (5)
  - Presyncope [None]
  - Disorientation [None]
  - Vomiting [None]
  - Nausea [None]
  - Tachycardia [None]

NARRATIVE: CASE EVENT DATE: 20141212
